FAERS Safety Report 21661107 (Version 1)
Quarter: 2022Q4

REPORT INFORMATION
  Report Type: Spontaneous
  Country: CN (occurrence: CN)
  Receive Date: 20221130
  Receipt Date: 20221130
  Transmission Date: 20230112
  Serious: Yes (Other)
  Sender: FDA-Public Use
  Company Number: None

PATIENT
  Age: 71 Year
  Sex: Female
  Weight: 50 kg

DRUGS (6)
  1. IFOSFAMIDE [Suspect]
     Active Substance: IFOSFAMIDE
     Indication: Soft tissue sarcoma
     Dosage: 3 G, QD, DILUTED WITH 0.9% SODIUM CHLORIDE 500 ML
     Route: 041
     Dates: start: 20221111, end: 20221112
  2. IFOSFAMIDE [Suspect]
     Active Substance: IFOSFAMIDE
     Indication: Neoplasm malignant
  3. SODIUM CHLORIDE [Suspect]
     Active Substance: SODIUM CHLORIDE
     Indication: Medication dilution
     Dosage: 500 ML, QD, USED TO DILUTE 3 G OF IFOSFAMIDE
     Route: 041
     Dates: start: 20221111, end: 20221112
  4. SODIUM CHLORIDE [Suspect]
     Active Substance: SODIUM CHLORIDE
     Dosage: 250 ML, QD, USED TO DILUTE 30 MG OF ETOPOSIDE INJECTION AND 500 ML, QD, USED TO DILUTE 80 MG OF ETOP
     Route: 041
     Dates: start: 20221111, end: 20221111
  5. ETOPOSIDE [Concomitant]
     Active Substance: ETOPOSIDE
     Indication: Soft tissue sarcoma
     Dosage: 110 MG, QD, (30 MG DILUTED WITH 250 ML OF 0.9% SODIUM CHLORIDE INJECTION, 80 MG DILUTED WITH 500 ML
     Route: 041
     Dates: start: 20221111, end: 20221111
  6. ETOPOSIDE [Concomitant]
     Active Substance: ETOPOSIDE
     Indication: Neoplasm malignant

REACTIONS (1)
  - Neurotoxicity [Recovering/Resolving]

NARRATIVE: CASE EVENT DATE: 20221112
